FAERS Safety Report 14038870 (Version 1)
Quarter: 2017Q4

REPORT INFORMATION
  Report Type: Spontaneous
  Country: FR (occurrence: FR)
  Receive Date: 20171004
  Receipt Date: 20171004
  Transmission Date: 20180321
  Serious: Yes (Hospitalization)
  Sender: FDA-Public Use
  Company Number: FR-BAYER-2017-185561

PATIENT
  Age: 44 Year
  Sex: Female

DRUGS (1)
  1. MIRENA [Suspect]
     Active Substance: LEVONORGESTREL
     Indication: CONTRACEPTION
     Dosage: 20 MCG/24HR, CONT
     Route: 015
     Dates: start: 20140514, end: 20170821

REACTIONS (16)
  - Arthralgia [Recovering/Resolving]
  - Paraesthesia [Recovering/Resolving]
  - Fatigue [Recovering/Resolving]
  - Hyperhidrosis [Recovering/Resolving]
  - Vertigo [Not Recovered/Not Resolved]
  - Myalgia [Recovering/Resolving]
  - Hirsutism [Recovering/Resolving]
  - Hypertension [Recovering/Resolving]
  - Myocarditis [Recovering/Resolving]
  - Hypotension [Recovering/Resolving]
  - Tinnitus [Recovering/Resolving]
  - Vision blurred [Recovering/Resolving]
  - Weight increased [Recovering/Resolving]
  - Nausea [Recovering/Resolving]
  - Ataxia [Recovering/Resolving]
  - Migraine with aura [Recovering/Resolving]

NARRATIVE: CASE EVENT DATE: 20141115
